FAERS Safety Report 9930972 (Version 1)
Quarter: 2014Q1

REPORT INFORMATION
  Report Type: Spontaneous
  Country: FR (occurrence: FR)
  Receive Date: 20140227
  Receipt Date: 20140227
  Transmission Date: 20141002
  Serious: Yes (Death)
  Sender: FDA-Public Use
  Company Number: PHHY2014FR023386

PATIENT
  Age: 66 Year
  Sex: Male

DRUGS (17)
  1. TRILEPTAL [Suspect]
     Dosage: 300 MG, BID
     Route: 048
     Dates: start: 20131214, end: 20140109
  2. KEPPRA [Suspect]
     Dosage: 500 MG, BID
     Route: 042
     Dates: start: 20131214, end: 20131227
  3. URBANYL [Suspect]
     Dosage: 25 MG, QD (10-5-10MG)
     Route: 048
     Dates: start: 20131219, end: 20140112
  4. MOPRAL [Suspect]
     Dosage: 20 MG, QD
     Route: 048
     Dates: start: 20131221, end: 20140112
  5. OFLOCET [Suspect]
     Indication: SEPSIS
     Dosage: 200 MG, BID
     Route: 048
     Dates: start: 20131224, end: 20140109
  6. ROCEPHINE [Suspect]
     Indication: SEPSIS
     Dosage: 1 G, QD
     Route: 042
     Dates: start: 20131227, end: 20140108
  7. ROCEPHINE [Suspect]
     Dosage: 1 UNK, UNK
     Dates: start: 20140113
  8. ZELITREX [Suspect]
     Dosage: 500 MG, BID
     Route: 048
     Dates: start: 20131228, end: 20140109
  9. RIVOTRIL [Concomitant]
     Dosage: UNK UKN, UNK
     Dates: start: 20131213, end: 20131220
  10. SOLUMEDROL [Concomitant]
     Dosage: 120 MG, UNK
     Dates: start: 20131213, end: 20140103
  11. SOLUMEDROL [Concomitant]
     Dosage: 80 MG, UNK
     Dates: start: 20140103, end: 20140105
  12. SOLUMEDROL [Concomitant]
     Dosage: 60 MG, UNK
     Dates: start: 20140105, end: 20140105
  13. BRICANYL [Concomitant]
     Dosage: UNK UKN, UNK
     Dates: start: 20131219, end: 20140109
  14. ATROVENT [Concomitant]
     Dosage: UNK UKN, UNK
     Dates: start: 20131219, end: 20140109
  15. AUGMENTIN [Concomitant]
     Indication: SEPSIS
     Dosage: 1 G, TID
     Route: 042
     Dates: start: 20131222, end: 20131227
  16. RADIOTHERAPY [Concomitant]
     Dosage: UNK UKN, UNK
     Dates: start: 20131223, end: 20140102
  17. SOLUPRED [Concomitant]
     Dosage: UNK UKN, UNK
     Dates: start: 20140109

REACTIONS (3)
  - Toxic epidermal necrolysis [Fatal]
  - Dermatitis exfoliative [Fatal]
  - Skin exfoliation [Fatal]
